FAERS Safety Report 4854943-5 (Version None)
Quarter: 2005Q4

REPORT INFORMATION
  Report Type: 
  Country: None (occurrence: None)
  Receive Date: 20051213
  Receipt Date: 20051130
  Transmission Date: 20060501
  Serious: Yes (Life-Threatening, Hospitalization, Other)
  Sender: FDA-Public Use
  Company Number: HQWYE793701DEC05

PATIENT
  Age: 35 Year
  Sex: Male

DRUGS (7)
  1. RAPAMUNE [Suspect]
     Indication: IMMUNOSUPPRESSANT DRUG THERAPY
     Dosage: 2 MG 1X PER 1 DAY
     Route: 048
     Dates: start: 20051104, end: 20051127
  2. MYCOPHENOLATE MOFETIL [Concomitant]
  3. PREDNISONE 50MG TAB [Concomitant]
  4. VALTREX [Concomitant]
  5. INN (ISONIAZID) [Concomitant]
  6. DIGOXIN [Concomitant]
  7. ISOSORBIDE DINITRATE [Concomitant]

REACTIONS (4)
  - BLOOD CREATININE INCREASED [None]
  - HAEMOGLOBIN S DECREASED [None]
  - PALLOR [None]
  - RENAL HAEMATOMA [None]
